FAERS Safety Report 15698195 (Version 6)
Quarter: 2021Q1

REPORT INFORMATION
  Report Type: Spontaneous
  Country: US (occurrence: US)
  Receive Date: 20181207
  Receipt Date: 20210330
  Transmission Date: 20210419
  Serious: No
  Sender: FDA-Public Use
  Company Number: US-BIOGEN-2018BI00668187

PATIENT
  Sex: Female

DRUGS (2)
  1. TECFIDERA [Suspect]
     Active Substance: DIMETHYL FUMARATE
     Route: 050
     Dates: start: 2018
  2. TECFIDERA [Suspect]
     Active Substance: DIMETHYL FUMARATE
     Indication: MULTIPLE SCLEROSIS
     Route: 050
     Dates: start: 20131121

REACTIONS (11)
  - Musculoskeletal stiffness [Not Recovered/Not Resolved]
  - Decreased immune responsiveness [Recovered/Resolved]
  - Feeling hot [Not Recovered/Not Resolved]
  - Primary progressive multiple sclerosis [Recovered/Resolved]
  - Hypoacusis [Recovered/Resolved]
  - Hot flush [Recovered/Resolved]
  - Drug ineffective [Unknown]
  - Central nervous system inflammation [Unknown]
  - Gastrointestinal disorder [Recovered/Resolved]
  - Temperature intolerance [Recovered/Resolved]
  - Hemiparesis [Unknown]
